FAERS Safety Report 6558230-9 (Version None)
Quarter: 2010Q1

REPORT INFORMATION
  Report Type: 
  Country: None (occurrence: None)
  Receive Date: 20100127
  Receipt Date: 20100127
  Transmission Date: 20100710
  Serious: Yes (Hospitalization)
  Sender: FDA-Public Use
  Company Number: None

PATIENT
  Age: 55 Year
  Sex: Female
  Weight: 82.27 kg

DRUGS (6)
  1. MELOXICAM [Suspect]
     Indication: OSTEOARTHRITIS
     Dosage: 7.5 MG DAILY PRN PO, CHRONIC
     Route: 048
  2. LEVOTHYROXINE SODIUM [Concomitant]
  3. LISINOPRIL [Concomitant]
  4. VIT B12 [Concomitant]
  5. VIT D [Concomitant]
  6. M.V.I. [Concomitant]

REACTIONS (2)
  - ANASTOMOTIC ULCER [None]
  - BRONCHITIS [None]
